FAERS Safety Report 7266969-5 (Version None)
Quarter: 2011Q1

REPORT INFORMATION
  Report Type: 
  Country: None (occurrence: None)
  Receive Date: 20110201
  Receipt Date: 20110125
  Transmission Date: 20110831
  Serious: Yes (Other)
  Sender: FDA-Public Use
  Company Number: US-JNJFOC-20110107001

PATIENT
  Age: 59 Year
  Sex: Female
  Weight: 65.32 kg

DRUGS (12)
  1. VYTORIN [Concomitant]
     Indication: BLOOD CHOLESTEROL INCREASED
  2. PEPCID AC [Suspect]
     Indication: GASTROOESOPHAGEAL REFLUX DISEASE
     Route: 048
  3. CLONAZEPAM [Concomitant]
     Indication: ANXIETY
  4. KLOR-CON [Concomitant]
     Indication: MINERAL SUPPLEMENTATION
  5. METFORMIN HCL [Concomitant]
     Indication: DIABETES MELLITUS
  6. HYOMAX [Concomitant]
     Indication: ABDOMINAL RIGIDITY
     Route: 060
  7. DEXILANT [Concomitant]
     Indication: GASTROOESOPHAGEAL REFLUX DISEASE
  8. CALCIUM+VITAMIN D [Concomitant]
     Indication: MINERAL SUPPLEMENTATION
  9. BONIVA [Concomitant]
     Indication: OSTEOPOROSIS
  10. VITAMIN D [Concomitant]
  11. ATENOLOL [Concomitant]
     Indication: HYPERTENSION
  12. PEPCID AC [Suspect]
     Route: 048

REACTIONS (3)
  - BLOOD URINE PRESENT [None]
  - URINARY TRACT INFECTION [None]
  - THROMBOSIS [None]
